FAERS Safety Report 23529353 (Version 2)
Quarter: 2024Q1

REPORT INFORMATION
  Report Type: Spontaneous
  Country: US (occurrence: US)
  Receive Date: 20240216
  Receipt Date: 20240221
  Transmission Date: 20240409
  Serious: No
  Sender: FDA-Public Use
  Company Number: US-ABBVIE-5640584

PATIENT
  Sex: Female

DRUGS (1)
  1. ESTRACE [Suspect]
     Active Substance: ESTRADIOL
     Indication: Product used for unknown indication
     Dosage: STRENGTH- 0.01% CREAM; FORM STRENGTH: 0.01 PERCENT
     Route: 067

REACTIONS (2)
  - Pruritus [Unknown]
  - Pruritus [Unknown]
